FAERS Safety Report 5591186-4 (Version None)
Quarter: 2008Q1

REPORT INFORMATION
  Report Type: 
  Country: None (occurrence: None)
  Receive Date: 20080115
  Receipt Date: 20080104
  Transmission Date: 20080703
  Serious: Yes (Other)
  Sender: FDA-Public Use
  Company Number: US-JNJFOC-20080100785

PATIENT
  Sex: Male
  Weight: 77.11 kg

DRUGS (2)
  1. ULTRAM [Suspect]
     Indication: PHARYNGOLARYNGEAL PAIN
     Route: 048
  2. NORCO [Concomitant]
     Indication: PHARYNGOLARYNGEAL PAIN
     Route: 048

REACTIONS (9)
  - ANOREXIA [None]
  - CHRONIC OBSTRUCTIVE PULMONARY DISEASE [None]
  - DYSPNOEA [None]
  - EAR PAIN [None]
  - HEADACHE [None]
  - INSOMNIA [None]
  - PNEUMONIA [None]
  - WEIGHT DECREASED [None]
  - WITHDRAWAL SYNDROME [None]
